FAERS Safety Report 11692759 (Version 1)
Quarter: 2015Q4

REPORT INFORMATION
  Report Type: Spontaneous
  Country: US (occurrence: US)
  Receive Date: 20151103
  Receipt Date: 20151103
  Transmission Date: 20160304
  Serious: No
  Sender: FDA-Public Use
  Company Number: US-ASTRAZENECA-2015SF03547

PATIENT
  Sex: Female
  Weight: 149.7 kg

DRUGS (3)
  1. METFORMIN [Concomitant]
     Active Substance: METFORMIN HYDROCHLORIDE
     Indication: DIABETES MELLITUS
     Route: 048
  2. BYDUREON [Suspect]
     Active Substance: EXENATIDE
     Indication: TYPE 2 DIABETES MELLITUS
     Dosage: 2 MG 4 COUNT, 2
     Route: 065
     Dates: start: 201505
  3. LANTUS [Concomitant]
     Active Substance: INSULIN GLARGINE

REACTIONS (7)
  - Intentional device misuse [Unknown]
  - Injury associated with device [Unknown]
  - Haemorrhage [Unknown]
  - Product quality issue [Unknown]
  - Overdose [Unknown]
  - Underdose [Unknown]
  - Blood glucose increased [Recovered/Resolved]
